FAERS Safety Report 9880698 (Version 2)
Quarter: 2014Q1

REPORT INFORMATION
  Report Type: Spontaneous
  Country: JP (occurrence: JP)
  Receive Date: 20140207
  Receipt Date: 20140226
  Transmission Date: 20141002
  Serious: Yes (Hospitalization)
  Sender: FDA-Public Use
  Company Number: JP-ELI_LILLY_AND_COMPANY-JP201401011548

PATIENT
  Age: 70 Year
  Sex: Male

DRUGS (15)
  1. HUMALOG 25% LISPRO, 75% NPL [Suspect]
     Indication: TYPE 2 DIABETES MELLITUS
     Dosage: UNK UNK, BID
     Route: 058
     Dates: start: 2008, end: 201306
  2. HUMALOG LISPRO [Suspect]
     Indication: TYPE 2 DIABETES MELLITUS
     Dosage: UNK, QID
     Route: 058
     Dates: start: 201306, end: 2013
  3. HUMALOG LISPRO [Suspect]
     Dosage: UNK
     Route: 058
  4. HUMALOG 50% LISPRO, 50% NPL [Suspect]
     Indication: TYPE 2 DIABETES MELLITUS
     Dosage: UNK UNK, BID
     Route: 058
     Dates: start: 2013
  5. LANTUS [Suspect]
     Indication: TYPE 2 DIABETES MELLITUS
     Dosage: UNK UNK, QD
     Route: 058
     Dates: start: 201306, end: 2013
  6. LANTUS [Suspect]
     Dosage: UNK
     Route: 058
  7. BAYASPIRIN [Concomitant]
     Dosage: UNK
     Route: 048
  8. TAKEPRON [Concomitant]
     Dosage: UNK
     Route: 048
  9. WARFARIN                           /00014801/ [Concomitant]
     Dosage: UNK
     Route: 048
  10. PANTOSIN [Concomitant]
     Dosage: UNK
     Route: 048
  11. MAGNESIUM OXIDE [Concomitant]
     Dosage: UNK
     Route: 048
  12. LYRICA [Concomitant]
     Dosage: UNK
     Route: 048
  13. HARNAL [Concomitant]
     Dosage: UNK
     Route: 048
  14. ACTOS [Concomitant]
     Dosage: UNK
     Dates: start: 201306
  15. EQUA [Concomitant]
     Dosage: UNK
     Dates: start: 201306

REACTIONS (7)
  - Colon cancer [Recovered/Resolved]
  - Colon cancer recurrent [Not Recovered/Not Resolved]
  - Hyperglycaemia [Not Recovered/Not Resolved]
  - Glycosylated haemoglobin increased [Unknown]
  - Anti-insulin antibody positive [Not Recovered/Not Resolved]
  - Pyelonephritis [Unknown]
  - Hyperglycaemia [Unknown]
